FAERS Safety Report 5950099-6 (Version None)
Quarter: 2008Q4

REPORT INFORMATION
  Report Type: 
  Country: None (occurrence: None)
  Receive Date: 20081112
  Receipt Date: 20081104
  Transmission Date: 20090506
  Serious: Yes (Hospitalization)
  Sender: FDA-Public Use
  Company Number: JP-ELI_LILLY_AND_COMPANY-JP200811001059

PATIENT
  Age: 60 Year
  Sex: Male
  Weight: 59 kg

DRUGS (3)
  1. GEMZAR [Suspect]
     Indication: PANCREATIC CARCINOMA STAGE IV
     Dosage: 800 MG/M2, OTHER
     Route: 042
     Dates: start: 20050513, end: 20050101
  2. TS 1 /JPN/ [Concomitant]
     Indication: PANCREATIC CARCINOMA STAGE IV
     Dosage: 60 MG/M2, OTHER
     Route: 048
     Dates: start: 20050513, end: 20050101
  3. TS 1 /JPN/ [Concomitant]
     Dosage: UNK, OTHER
     Route: 048
     Dates: start: 20050101, end: 20050101

REACTIONS (6)
  - ANAEMIA [None]
  - ANOREXIA [None]
  - ASCITES [None]
  - CARBOHYDRATE ANTIGEN 19-9 INCREASED [None]
  - MALIGNANT ASCITES [None]
  - TUMOUR MARKER INCREASED [None]
